FAERS Safety Report 7711047-1 (Version None)
Quarter: 2011Q3

REPORT INFORMATION
  Report Type: 
  Country: None (occurrence: None)
  Receive Date: 20110826
  Receipt Date: 20110817
  Transmission Date: 20111222
  Serious: Yes (Hospitalization)
  Sender: FDA-Public Use
  Company Number: US-US-EMD SERONO, INC.-230440J09USA

PATIENT
  Sex: Female
  Weight: 59 kg

DRUGS (3)
  1. CELEXA [Concomitant]
     Indication: ANXIETY
     Dates: start: 20000701
  2. REBIF [Suspect]
  3. REBIF [Suspect]
     Indication: MULTIPLE SCLEROSIS
     Dosage: TOTAL EXPOSURE 5, 8.8 MCG INJECTIONS
     Route: 058
     Dates: start: 20090801, end: 20090818

REACTIONS (3)
  - OLIGOHYDRAMNIOS [None]
  - PREMATURE DELIVERY [None]
  - MATERNAL EXPOSURE DURING PREGNANCY [None]
